FAERS Safety Report 5728176-4 (Version None)
Quarter: 2008Q2

REPORT INFORMATION
  Report Type: 
  Country: None (occurrence: None)
  Receive Date: 20080430
  Receipt Date: 20080423
  Transmission Date: 20081010
  Serious: Yes (Life-Threatening, Hospitalization, Other)
  Sender: FDA-Public Use
  Company Number: TPA2008A00392

PATIENT
  Age: 73 Year
  Sex: Male
  Weight: 74.8435 kg

DRUGS (10)
  1. PIOGLITAZONE HCL [Suspect]
     Indication: CARDIOVASCULAR EVENT PROPHYLAXIS
     Dosage: 1 IN 1 D, PER ORAL
     Route: 048
     Dates: start: 20061109, end: 20061227
  2. PIOGLITAZONE HCL [Suspect]
     Indication: CEREBROVASCULAR ACCIDENT PROPHYLAXIS
     Dosage: 1 IN 1 D, PER ORAL
     Route: 048
     Dates: start: 20061109, end: 20061227
  3. WARFARIN SODIUM [Concomitant]
  4. ZOLOFT [Concomitant]
  5. ASPIRIN [Concomitant]
  6. CO-Q 10 (UBIDECARENONE) [Concomitant]
  7. FISH OIL (FISH OIL) [Concomitant]
  8. FOLIC ACID [Concomitant]
  9. GARLIC (ALLIUM SATIVUM) [Concomitant]
  10. MULTIVITAMIN [Concomitant]

REACTIONS (21)
  - ALANINE AMINOTRANSFERASE INCREASED [None]
  - ANAEMIA [None]
  - ARTERIOSCLEROSIS [None]
  - ARTHRALGIA [None]
  - ASPARTATE AMINOTRANSFERASE INCREASED [None]
  - ASPIRATION [None]
  - BLOOD BILIRUBIN INCREASED [None]
  - CEREBROVASCULAR ACCIDENT [None]
  - CHOLELITHIASIS [None]
  - EYE MOVEMENT DISORDER [None]
  - FALL [None]
  - FEMUR FRACTURE [None]
  - HIP FRACTURE [None]
  - INTERNATIONAL NORMALISED RATIO DECREASED [None]
  - MYALGIA [None]
  - NEUTROPENIA [None]
  - PNEUMONIA [None]
  - PNEUMONIA ASPIRATION [None]
  - TROPONIN INCREASED [None]
  - VASCULAR CALCIFICATION [None]
  - VIRAL INFECTION [None]
